FAERS Safety Report 10026400 (Version 1)
Quarter: 2014Q1

REPORT INFORMATION
  Report Type: Spontaneous
  Country: US (occurrence: US)
  Receive Date: 20140321
  Receipt Date: 20140321
  Transmission Date: 20141002
  Serious: No
  Sender: FDA-Public Use
  Company Number: US-009507513-1403USA008204

PATIENT
  Age: 59 Year
  Sex: Female

DRUGS (3)
  1. ZETIA [Suspect]
     Indication: BLOOD CHOLESTEROL INCREASED
     Dosage: ONE TABLET BY MOUTH ONCE DAILY
     Route: 048
     Dates: start: 20140307, end: 20140312
  2. DIOVAN [Concomitant]
  3. METFORMIN [Concomitant]

REACTIONS (7)
  - Ear pruritus [Unknown]
  - Pruritus [Unknown]
  - Urticaria [Unknown]
  - Arthralgia [Unknown]
  - Chills [Unknown]
  - Pain [Unknown]
  - Asthenia [Unknown]
